FAERS Safety Report 7676125-4 (Version None)
Quarter: 2011Q3

REPORT INFORMATION
  Report Type: 
  Country: None (occurrence: None)
  Receive Date: 20110811
  Receipt Date: 20110801
  Transmission Date: 20111222
  Serious: Yes (Hospitalization)
  Sender: FDA-Public Use
  Company Number: US-JNJFOC-20090501516

PATIENT
  Sex: Male
  Weight: 31.8 kg

DRUGS (3)
  1. REMICADE [Suspect]
     Indication: COLITIS ULCERATIVE
     Route: 042
     Dates: start: 20071226
  2. MERCAPTOPURINE [Concomitant]
  3. REMICADE [Suspect]
     Dosage: TOTAL 3 DOSES
     Route: 042
     Dates: start: 20080321

REACTIONS (2)
  - COLITIS ULCERATIVE [None]
  - PAIN [None]
